FAERS Safety Report 12890364 (Version 4)
Quarter: 2017Q3

REPORT INFORMATION
  Report Type: Spontaneous
  Country: US (occurrence: US)
  Receive Date: 20161027
  Receipt Date: 20170721
  Transmission Date: 20171127
  Serious: Yes (Hospitalization)
  Sender: FDA-Public Use
  Company Number: US-ACTELION-A-NJ2016-144404

PATIENT
  Age: 27 Year
  Sex: Female
  Weight: 47.17 kg

DRUGS (4)
  1. ADCIRCA [Concomitant]
     Active Substance: TADALAFIL
  2. OPSUMIT [Suspect]
     Active Substance: MACITENTAN
     Indication: PULMONARY HYPERTENSION
     Dosage: 10 MG, QD
     Route: 048
     Dates: start: 20141211
  3. REMODULIN [Concomitant]
     Active Substance: TREPROSTINIL
  4. ORENITRAM [Concomitant]
     Active Substance: TREPROSTINIL

REACTIONS (10)
  - Blood creatine increased [Unknown]
  - Abdominal distension [Unknown]
  - Presyncope [Unknown]
  - Weight increased [Unknown]
  - Peripheral swelling [Unknown]
  - Fatigue [Unknown]
  - Dyspnoea [Unknown]
  - Dizziness [Unknown]
  - Infusion site pain [Unknown]
  - Skin irritation [Unknown]
